FAERS Safety Report 4579527-8 (Version None)
Quarter: 2005Q1

REPORT INFORMATION
  Report Type: 
  Country: None (occurrence: None)
  Receive Date: 20050210
  Receipt Date: 20050127
  Transmission Date: 20050727
  Serious: Yes (Hospitalization, Other)
  Sender: FDA-Public Use
  Company Number: 2005S1000137

PATIENT
  Age: 88 Year
  Sex: Female

DRUGS (14)
  1. LISINOPRIL [Suspect]
     Indication: HYPERTENSION
     Dosage: 10 MG QD, ORAL
     Route: 048
     Dates: end: 20050106
  2. LISINOPRIL [Suspect]
     Indication: PROPHYLAXIS
     Dosage: 10 MG QD, ORAL
     Route: 048
     Dates: end: 20050106
  3. LISINOPRIL [Suspect]
     Indication: RENAL DISORDER
     Dosage: 10 MG QD, ORAL
     Route: 048
     Dates: end: 20050106
  4. ALENDRONATE SODIUM [Concomitant]
  5. FUROSEMIDE [Concomitant]
  6. REPAGLINIDE [Concomitant]
  7. METHYLPREDNISOLONE [Concomitant]
  8. METOPROLOL SUCCINATE [Concomitant]
  9. DIGOXIN [Concomitant]
  10. PROPOXYPHENE NAPSYLATE W/ ACETAMINOPHEN [Concomitant]
  11. MULTI-VITAMIN [Concomitant]
  12. CALCIUM GLUCONATE [Concomitant]
  13. ASPIRIN [Concomitant]
  14. ALPRAZOLAM [Concomitant]

REACTIONS (4)
  - ARRHYTHMIA [None]
  - DIZZINESS [None]
  - DRY MOUTH [None]
  - HEART RATE DECREASED [None]
